FAERS Safety Report 12960066 (Version 1)
Quarter: 2016Q4

REPORT INFORMATION
  Report Type: Spontaneous
  Country: US (occurrence: US)
  Receive Date: 20161119
  Receipt Date: 20161119
  Transmission Date: 20170207
  Serious: Yes (Other)
  Sender: FDA-Public Use
  Company Number: None

PATIENT
  Age: 2 Month
  Sex: Female
  Weight: 96.75 kg

DRUGS (2)
  1. FLU SHOT [Concomitant]
     Active Substance: INFLUENZA VIRUS VACCINE
  2. MUCINEX [Suspect]
     Active Substance: GUAIFENESIN
     Indication: SINUS DISORDER
     Dosage: ?          QUANTITY:2 CAPSULE(S);?
     Route: 048
     Dates: start: 20161112, end: 20161113

REACTIONS (5)
  - Hyperventilation [None]
  - Tremor [None]
  - Muscle twitching [None]
  - Abnormal behaviour [None]
  - Panic attack [None]

NARRATIVE: CASE EVENT DATE: 20161113
